FAERS Safety Report 24302236 (Version 1)
Quarter: 2024Q3

REPORT INFORMATION
  Report Type: Spontaneous
  Country: US (occurrence: US)
  Receive Date: 20240910
  Receipt Date: 20240910
  Transmission Date: 20241017
  Serious: No
  Sender: JOHNSON AND JOHNSON
  Company Number: US-JNJFOC-20240913870

PATIENT
  Age: 53 Year
  Sex: Female

DRUGS (20)
  1. TRACLEER [Suspect]
     Active Substance: BOSENTAN
     Indication: Product used for unknown indication
     Route: 048
  2. TREPROSTINIL [Suspect]
     Active Substance: TREPROSTINIL
     Indication: Pulmonary arterial hypertension
     Route: 055
     Dates: start: 2024
  3. TREPROSTINIL [Suspect]
     Active Substance: TREPROSTINIL
     Route: 055
     Dates: start: 20240123
  4. LEVOCETIRIZINE DIHYDROCHLORIDE [Concomitant]
     Active Substance: LEVOCETIRIZINE DIHYDROCHLORIDE
  5. GLUCOSAMINE [Concomitant]
     Active Substance: GLUCOSAMINE
  6. EXCEDRIN MIGRAINE [Concomitant]
     Active Substance: ACETAMINOPHEN\ASPIRIN\CAFFEINE
  7. ACETAMINOPHEN [Concomitant]
     Active Substance: ACETAMINOPHEN
  8. TADALAFIL [Concomitant]
     Active Substance: TADALAFIL
  9. GOODY^S EXTRA STRENGTH [Concomitant]
  10. ESOMEPRAZOLE MAGNESIUM [Concomitant]
     Active Substance: ESOMEPRAZOLE MAGNESIUM
  11. SOTATERCEPT [Concomitant]
     Active Substance: SOTATERCEPT
  12. OPSUMIT [Concomitant]
     Active Substance: MACITENTAN
  13. PREDNISONE [Concomitant]
     Active Substance: PREDNISONE
  14. GAS-X MAX STRENGTH [Concomitant]
  15. TUMS [Concomitant]
     Active Substance: CALCIUM CARBONATE
  16. MUCINEX DM [Concomitant]
     Active Substance: DEXTROMETHORPHAN HYDROBROMIDE\GUAIFENESIN
  17. NIGHTTIME COLD + FLU [Concomitant]
  18. ACYCLOVIR [Concomitant]
     Active Substance: ACYCLOVIR
  19. FUROSEMIDE [Concomitant]
     Active Substance: FUROSEMIDE
  20. GLUCOSAMINE/CHONDROITIN [CHONDROITIN SULFATE;GLUCOSAMINE] [Concomitant]

REACTIONS (2)
  - Swelling [Unknown]
  - Fluid retention [Unknown]

NARRATIVE: CASE EVENT DATE: 20240101
